FAERS Safety Report 4700066-5 (Version None)
Quarter: 2005Q2

REPORT INFORMATION
  Report Type: 
  Country: None (occurrence: None)
  Receive Date: 20050627
  Receipt Date: 20050620
  Transmission Date: 20051028
  Serious: Yes (Hospitalization)
  Sender: FDA-Public Use
  Company Number: GB-GLAXOSMITHKLINE-B0385006A

PATIENT
  Sex: Female

DRUGS (4)
  1. AVANDIA [Suspect]
     Route: 048
  2. THYROID TAB [Concomitant]
     Route: 065
  3. STATINS [Concomitant]
     Route: 065
  4. ANTI-HYPERTENSIVE [Concomitant]
     Route: 065

REACTIONS (2)
  - PHARMACEUTICAL PRODUCT COMPLAINT [None]
  - RENAL HAEMORRHAGE [None]
